FAERS Safety Report 8936192 (Version 1)
Quarter: 2012Q4

REPORT INFORMATION
  Report Type: 
  Country: KR (occurrence: KR)
  Receive Date: 20121130
  Receipt Date: 20121130
  Transmission Date: 20130627
  Serious: Yes (Hospitalization)
  Sender: FDA-Public Use
  Company Number: KR-SANOFI-AVENTIS-2012SA086115

PATIENT
  Age: 35 Year
  Sex: Female
  Weight: 100 kg

DRUGS (1)
  1. LANTUS [Suspect]
     Indication: DIABETES MELLITUS
     Dosage: 65-0-55 units dose
     Route: 058
     Dates: start: 2006

REACTIONS (3)
  - Haematuria [Not Recovered/Not Resolved]
  - Diabetes mellitus [Not Recovered/Not Resolved]
  - Exposure during pregnancy [Unknown]
